FAERS Safety Report 4356123-9 (Version None)
Quarter: 2004Q2

REPORT INFORMATION
  Report Type: 
  Country: None (occurrence: None)
  Receive Date: 20040506
  Receipt Date: 20040422
  Transmission Date: 20050107
  Serious: Yes (Hospitalization)
  Sender: FDA-Public Use
  Company Number: 2004211265FR

PATIENT
  Age: 74 Year
  Sex: Female
  Weight: 90 kg

DRUGS (14)
  1. ZYVOX [Suspect]
     Dosage: 1200 MG, DAILY, ORAL
     Route: 048
     Dates: start: 20040210, end: 20040216
  2. POLARAMINE [Suspect]
     Dosage: 12 MG, DAILY, ORAL
     Route: 048
     Dates: start: 20040210
  3. SINTROM [Suspect]
     Dosage: 0.5 DF, DAILY, ORAL
     Route: 048
     Dates: start: 20000615
  4. LASIX [Concomitant]
  5. ALLOPURINOL TAB [Concomitant]
  6. DIGOXIN [Concomitant]
  7. CLAMOXYL [Concomitant]
  8. GENTAMICIN [Concomitant]
  9. TARGOCID [Concomitant]
  10. SINGULAIR [Concomitant]
  11. ZYRTEC [Concomitant]
  12. NALCRON [Concomitant]
  13. TRAMADOL HCL [Concomitant]
  14. APROVEL (IRBESARTAN) [Concomitant]

REACTIONS (12)
  - CONFUSIONAL STATE [None]
  - COOMBS POSITIVE HAEMOLYTIC ANAEMIA [None]
  - DISINHIBITION [None]
  - DISORIENTATION [None]
  - DISTURBANCE IN ATTENTION [None]
  - ERYSIPELAS [None]
  - HAEMOLYSIS [None]
  - HALLUCINATION [None]
  - HYPERBILIRUBINAEMIA [None]
  - HYPOPROTHROMBINAEMIA [None]
  - INTERNATIONAL NORMALISED RATIO INCREASED [None]
  - TOXIC SKIN ERUPTION [None]
